FAERS Safety Report 5196751-4 (Version None)
Quarter: 2006Q4

REPORT INFORMATION
  Report Type: 
  Country: None (occurrence: None)
  Receive Date: 20061227
  Receipt Date: 20061212
  Transmission Date: 20070319
  Serious: Yes (Other)
  Sender: FDA-Public Use
  Company Number: 2006152867

PATIENT
  Age: 61 Year
  Sex: Female

DRUGS (4)
  1. CHANTIX [Suspect]
     Indication: SMOKING CESSATION THERAPY
     Dosage: 1 MG (0.5 MG, 2 IN 1 D)
     Dates: start: 20061204
  2. FLUOXETINE [Concomitant]
  3. DIAZEPAM [Concomitant]
  4. CELEBREX [Concomitant]

REACTIONS (2)
  - ABNORMAL DREAMS [None]
  - SLEEP PARALYSIS [None]
